FAERS Safety Report 7576250-2 (Version None)
Quarter: 2011Q2

REPORT INFORMATION
  Report Type: 
  Country: None (occurrence: None)
  Receive Date: 20110623
  Receipt Date: 20110623
  Transmission Date: 20111010
  Serious: No
  Sender: FDA-Public Use
  Company Number: None

PATIENT
  Age: 31 Year
  Sex: Male

DRUGS (1)
  1. BACLOFEN [Suspect]
     Indication: LIVER INJURY
     Dates: start: 20090902, end: 20090910

REACTIONS (12)
  - ABDOMINAL PAIN [None]
  - RESTLESSNESS [None]
  - OCULAR ICTERUS [None]
  - BLOOD BILIRUBIN INCREASED [None]
  - LYMPHADENOPATHY [None]
  - FATIGUE [None]
  - ASPARTATE AMINOTRANSFERASE INCREASED [None]
  - BLOOD ALKALINE PHOSPHATASE INCREASED [None]
  - PRURITUS [None]
  - LIVER INJURY [None]
  - ALANINE AMINOTRANSFERASE INCREASED [None]
  - HEPATITIS C [None]
